FAERS Safety Report 18734924 (Version 6)
Quarter: 2022Q2

REPORT INFORMATION
  Report Type: Report from Study
  Country: CA (occurrence: CA)
  Receive Date: 20210113
  Receipt Date: 20220408
  Transmission Date: 20220721
  Serious: Yes (Other)
  Sender: FDA-Public Use
  Company Number: CA-SA-SAC20210111000473

PATIENT
  Age: 37 Year
  Sex: Male

DRUGS (22)
  1. VANDETANIB [Suspect]
     Active Substance: VANDETANIB
     Indication: Thyroid cancer
     Dosage: 200 MG, QD
     Route: 048
     Dates: start: 20200328, end: 20201220
  2. VANDETANIB [Suspect]
     Active Substance: VANDETANIB
     Dosage: 200 MG, QD
     Dates: start: 20220218
  3. ACETAMINOPHEN\CAFFEINE [Concomitant]
     Active Substance: ACETAMINOPHEN\CAFFEINE
     Indication: Pain
     Dosage: 1 OR 2 TABS PO HS PRN
     Route: 048
  4. ACETAMINOPHEN\CAFFEINE [Concomitant]
     Active Substance: ACETAMINOPHEN\CAFFEINE
     Dosage: UNK
     Route: 048
  5. BETADERM [Concomitant]
     Active Substance: BETAMETHASONE VALERATE
     Dosage: 0.1 %, Q12H
     Route: 061
  6. DOXYCYCLINE HYCLATE [Concomitant]
     Active Substance: DOXYCYCLINE HYCLATE
     Indication: Medullary thyroid cancer
     Dosage: 0.5,DF, Q12H (100MG HALF TABLET)
     Route: 048
  7. DOXYCYCLINE HYCLATE [Concomitant]
     Active Substance: DOXYCYCLINE HYCLATE
     Dosage: 100MG
     Route: 048
  8. HEMP [Concomitant]
     Active Substance: HEMP
     Dosage: 1 DF, QD (OIL 1 TBSP DAILY)
     Route: 065
  9. HYDROXYZINE HYDROCHLORIDE [Concomitant]
     Active Substance: HYDROXYZINE HYDROCHLORIDE
     Indication: Pruritus
     Dosage: 1 DF, Q8H (25 MG 1 CAP TID PRN (AS NEEDED))
     Route: 048
  10. LANSOPRAZOLE [Concomitant]
     Active Substance: LANSOPRAZOLE
     Dosage: 30 MG, QD
     Route: 048
  11. MINOCYCLINE [Concomitant]
     Active Substance: MINOCYCLINE HYDROCHLORIDE
     Dosage: 1 DF, QD(100MG,1 DAY)
     Route: 065
  12. TRAMADOL ACET [Concomitant]
     Dosage: 37.5MG/325MG 1 OR 2 TABS TID PRN (AS NEEDED)
     Route: 048
  13. VITAMIN D NOS [Concomitant]
     Active Substance: VITAMIN D NOS
     Dosage: UNK UNK, QD
     Route: 065
  14. IBUPROFEN [Concomitant]
     Active Substance: IBUPROFEN
     Dosage: 30 MG, QD
     Route: 065
  15. ACETAMINOPHEN\CAFFEINE\CODEINE PHOSPHATE [Concomitant]
     Active Substance: ACETAMINOPHEN\CAFFEINE\CODEINE PHOSPHATE
     Dosage: 30 MG
     Route: 065
  16. METOCLOPRAMIDE [Concomitant]
     Active Substance: METOCLOPRAMIDE
     Indication: Nausea
     Dosage: 10 MG, QD
     Route: 048
  17. VIMOVO [Concomitant]
     Active Substance: ESOMEPRAZOLE MAGNESIUM\NAPROXEN
     Indication: Pain
     Dosage: 1 DF, Q12H
     Route: 048
  18. PROTEIN [Concomitant]
     Active Substance: PROTEIN
     Route: 048
  19. TRAMADOL [Concomitant]
     Active Substance: TRAMADOL
     Indication: Pain
     Dosage: 37.5MG /325 MG 1 OR 2 TABS PO
     Route: 048
  20. HYDROXYZINE [Concomitant]
     Active Substance: HYDROXYZINE HYDROCHLORIDE
     Indication: Pruritus
     Route: 048
  21. IBUPROFEN [Concomitant]
     Active Substance: IBUPROFEN
     Dosage: UNK
  22. VITAMIN D NOS [Concomitant]
     Active Substance: VITAMIN D NOS
     Dosage: UNK, QD

REACTIONS (4)
  - Drug-induced liver injury [Unknown]
  - Blood pressure abnormal [Not Recovered/Not Resolved]
  - Extra dose administered [Unknown]
  - Product dispensing error [Unknown]

NARRATIVE: CASE EVENT DATE: 20211104
